FAERS Safety Report 16827735 (Version 2)
Quarter: 2019Q3

REPORT INFORMATION
  Report Type: Spontaneous
  Country: US (occurrence: US)
  Receive Date: 20190919
  Receipt Date: 20190927
  Transmission Date: 20191005
  Serious: No
  Sender: FDA-Public Use
  Company Number: US-PFIZER INC-2019402554

PATIENT
  Age: 62 Year
  Sex: Female
  Weight: 82 kg

DRUGS (3)
  1. XGEVA [Concomitant]
     Active Substance: DENOSUMAB
     Dosage: 120 MG, EVERY 3 MONTHS
  2. FASLODEX [Concomitant]
     Active Substance: FULVESTRANT
     Dosage: 500 MG, CYCLIC (EVERY 28 DAYS)
  3. IBRANCE [Suspect]
     Active Substance: PALBOCICLIB
     Indication: BREAST CANCER METASTATIC
     Dosage: 125 MG, CYCLIC (FOR 21 DAYS, 28 DAY CYCLE)
     Route: 048
     Dates: start: 20190907

REACTIONS (3)
  - Insomnia [Unknown]
  - Headache [Unknown]
  - Fatigue [Unknown]
